FAERS Safety Report 18151018 (Version 1)
Quarter: 2020Q3

REPORT INFORMATION
  Report Type: Spontaneous
  Country: US (occurrence: US)
  Receive Date: 20200814
  Receipt Date: 20200814
  Transmission Date: 20201103
  Serious: No
  Sender: FDA-Public Use
  Company Number: US-SUNOVION-2020SUN002289

PATIENT
  Age: 70 Year
  Sex: Female

DRUGS (1)
  1. LONHALA MAGNAIR [Suspect]
     Active Substance: GLYCOPYRROLATE
     Dosage: 25 ?G STARTER KIT
     Route: 055

REACTIONS (4)
  - Dyspnoea [Recovered/Resolved]
  - Device malfunction [Recovered/Resolved]
  - Product dose omission issue [Recovered/Resolved]
  - Device issue [Recovered/Resolved]
